FAERS Safety Report 6931893-1 (Version None)
Quarter: 2010Q3

REPORT INFORMATION
  Report Type: 
  Country: None (occurrence: None)
  Receive Date: 20100813
  Receipt Date: 20100616
  Transmission Date: 20110219
  Serious: No
  Sender: FDA-Public Use
  Company Number: 1000014529

PATIENT
  Age: 51 Year
  Sex: Male

DRUGS (12)
  1. SAVELLA [Suspect]
     Indication: FIBROMYALGIA
     Dosage: 12.5 MG 912.4 MG,1 IN 1 D), ORAL; 25 MG (12.5 MG,2 IN 1 D), ORAL; 50 MG (25 MG,2 IN 1 D), ORAL
     Route: 048
     Dates: start: 20100301, end: 20100301
  2. SAVELLA [Suspect]
     Indication: FIBROMYALGIA
     Dosage: 12.5 MG 912.4 MG,1 IN 1 D), ORAL; 25 MG (12.5 MG,2 IN 1 D), ORAL; 50 MG (25 MG,2 IN 1 D), ORAL
     Route: 048
     Dates: start: 20100301, end: 20100301
  3. SAVELLA [Suspect]
     Indication: FIBROMYALGIA
     Dosage: 12.5 MG 912.4 MG,1 IN 1 D), ORAL; 25 MG (12.5 MG,2 IN 1 D), ORAL; 50 MG (25 MG,2 IN 1 D), ORAL
     Route: 048
     Dates: start: 20100601, end: 20100601
  4. SAVELLA [Suspect]
     Indication: FIBROMYALGIA
     Dosage: 100 MG (50 MG,2 IN 1 D), ORAL
     Route: 048
     Dates: start: 20100301, end: 20100301
  5. SAVELLA [Suspect]
     Indication: FIBROMYALGIA
     Dosage: (12.5 MG), ORAL
     Route: 048
     Dates: start: 20100601, end: 20100601
  6. SAVELLA [Suspect]
     Indication: FIBROMYALGIA
     Dosage: ORAL
     Route: 048
  7. VITAMIN D [Concomitant]
  8. JANUVIA [Concomitant]
  9. BYSTOLIC [Concomitant]
  10. MICARDIS [Concomitant]
  11. CRESTOR [Concomitant]
  12. PLAVIX [Concomitant]

REACTIONS (1)
  - INFLAMMATION [None]
